FAERS Safety Report 4468244-0 (Version None)
Quarter: 2004Q4

REPORT INFORMATION
  Report Type: 
  Country: None (occurrence: None)
  Receive Date: 20041007
  Receipt Date: 20041003
  Transmission Date: 20050328
  Serious: Yes (Hospitalization, Disabling)
  Sender: FDA-Public Use
  Company Number: CA-MERCK-0410CAN00063

PATIENT
  Sex: Male

DRUGS (3)
  1. [THERAPY UNSPECIFIED] [Concomitant]
     Route: 065
  2. [THERAPY UNSPECIFIED] [Concomitant]
     Indication: DYSPNOEA
     Route: 065
  3. VIOXX [Suspect]
     Indication: ARTHRALGIA
     Route: 048
     Dates: start: 20010101

REACTIONS (2)
  - ATRIAL FIBRILLATION [None]
  - CARDIAC FAILURE CONGESTIVE [None]
